FAERS Safety Report 17441549 (Version 2)
Quarter: 2020Q1

REPORT INFORMATION
  Report Type: Report from Study
  Country: GB (occurrence: GB)
  Receive Date: 20200220
  Receipt Date: 20200318
  Transmission Date: 20200409
  Serious: Yes (Other)
  Sender: FDA-Public Use
  Company Number: GB-JNJFOC-20200213054

PATIENT
  Sex: Female
  Weight: 67.6 kg

DRUGS (7)
  1. ISOSORBIDE MONONITRATE. [Concomitant]
     Active Substance: ISOSORBIDE MONONITRATE
     Dates: start: 20120118
  2. STELARA [Suspect]
     Active Substance: USTEKINUMAB
     Indication: PSORIASIS
     Route: 058
     Dates: start: 20150605, end: 20151125
  3. DILTIAZEM. [Concomitant]
     Active Substance: DILTIAZEM
     Dates: start: 20120208
  4. NICORANDIL [Concomitant]
     Active Substance: NICORANDIL
     Dates: start: 20120118
  5. OMEPRAZOLE. [Concomitant]
     Active Substance: OMEPRAZOLE
     Dates: start: 20120208, end: 20190902
  6. LEVOTHYROXINE SODIUM. [Concomitant]
     Active Substance: LEVOTHYROXINE SODIUM
     Dates: start: 20120118
  7. HYDROXYZINE [Concomitant]
     Active Substance: HYDROXYZINE HYDROCHLORIDE
     Dates: start: 20150121

REACTIONS (1)
  - Intraductal proliferative breast lesion [Not Recovered/Not Resolved]

NARRATIVE: CASE EVENT DATE: 20190402
